FAERS Safety Report 19016707 (Version 1)
Quarter: 2021Q1

REPORT INFORMATION
  Report Type: Spontaneous
  Country: US (occurrence: US)
  Receive Date: 20210317
  Receipt Date: 20210317
  Transmission Date: 20210420
  Serious: No
  Sender: FDA-Public Use
  Company Number: US-HIKMA PHARMACEUTICALS USA INC.-US-H14001-20-03271

PATIENT
  Sex: Female

DRUGS (2)
  1. LEUCOVORIN. [Suspect]
     Active Substance: LEUCOVORIN
     Indication: BLOOD FOLATE DECREASED
  2. LEUCOVORIN. [Suspect]
     Active Substance: LEUCOVORIN
     Indication: AUTISM SPECTRUM DISORDER
     Route: 048

REACTIONS (2)
  - Off label use [Not Recovered/Not Resolved]
  - Wrong dose [Not Recovered/Not Resolved]
